FAERS Safety Report 7368618-4 (Version None)
Quarter: 2011Q1

REPORT INFORMATION
  Report Type: 
  Country: None (occurrence: None)
  Receive Date: 20110308
  Receipt Date: 20110303
  Transmission Date: 20110831
  Serious: Yes (Death, Other)
  Sender: FDA-Public Use
  Company Number: 2007SP009902

PATIENT
  Age: 47 Year
  Sex: Female
  Weight: 48 kg

DRUGS (15)
  1. ONCOVIN [Concomitant]
  2. SIGMART [Concomitant]
  3. NIDRAN [Concomitant]
  4. NEUPOGEN [Concomitant]
  5. MATULANE [Concomitant]
  6. METHYCOBAL [Concomitant]
  7. HERBESSER R [Concomitant]
  8. TEMODAL [Suspect]
     Indication: GLIOBLASTOMA MULTIFORME
     Dosage: SEE IMAGE
     Route: 048
     Dates: start: 20070123, end: 20070127
  9. TEMODAL [Suspect]
     Indication: GLIOBLASTOMA MULTIFORME
     Dosage: SEE IMAGE
     Route: 048
     Dates: start: 20070326, end: 20070330
  10. TEMODAL [Suspect]
     Indication: GLIOBLASTOMA MULTIFORME
     Dosage: SEE IMAGE
     Route: 048
     Dates: start: 20061226, end: 20061230
  11. TEMODAL [Suspect]
     Indication: GLIOBLASTOMA MULTIFORME
     Dosage: SEE IMAGE
     Route: 048
     Dates: start: 20061123, end: 20061127
  12. TEMODAL [Suspect]
     Indication: GLIOBLASTOMA MULTIFORME
     Dosage: SEE IMAGE
     Route: 048
     Dates: start: 20061026, end: 20061030
  13. TEMODAL [Suspect]
     Indication: GLIOBLASTOMA MULTIFORME
     Dosage: SEE IMAGE
     Route: 048
     Dates: start: 20070226, end: 20070302
  14. BAKTAR [Concomitant]
  15. FRANDOL S [Concomitant]

REACTIONS (4)
  - NEUTROPHIL COUNT DECREASED [None]
  - GLIOBLASTOMA MULTIFORME [None]
  - IIIRD NERVE PARALYSIS [None]
  - DISEASE PROGRESSION [None]
